FAERS Safety Report 17796355 (Version 7)
Quarter: 2022Q4

REPORT INFORMATION
  Report Type: Spontaneous
  Country: US (occurrence: US)
  Receive Date: 20200517
  Receipt Date: 20221229
  Transmission Date: 20230112
  Serious: Yes (Hospitalization, Other)
  Sender: FDA-Public Use
  Company Number: US-BLUEPRINT MEDICINES CORPORATION-SP-US-2020-000587

PATIENT
  Age: 84 Year
  Sex: Female

DRUGS (6)
  1. AYVAKIT [Suspect]
     Active Substance: AVAPRITINIB
     Indication: Systemic mastocytosis
     Route: 048
     Dates: start: 20200504, end: 20200526
  2. AYVAKIT [Suspect]
     Active Substance: AVAPRITINIB
     Route: 048
     Dates: start: 20210501
  3. AYVAKIT [Suspect]
     Active Substance: AVAPRITINIB
     Route: 048
     Dates: start: 202004, end: 20200518
  4. AYVAKIT [Suspect]
     Active Substance: AVAPRITINIB
     Route: 048
     Dates: start: 20200604
  5. AYVAKIT [Suspect]
     Active Substance: AVAPRITINIB
     Route: 065
     Dates: start: 202004
  6. AYVAKIT [Suspect]
     Active Substance: AVAPRITINIB
     Route: 065
     Dates: start: 20200518

REACTIONS (18)
  - Dementia Alzheimer^s type [Unknown]
  - Mastocytosis [Unknown]
  - Mental impairment [Recovering/Resolving]
  - Dementia [Not Recovered/Not Resolved]
  - Balance disorder [Unknown]
  - Movement disorder [Unknown]
  - Gait disturbance [Recovering/Resolving]
  - Feeling abnormal [Unknown]
  - Depression [Unknown]
  - Speech disorder [Unknown]
  - Fatigue [Unknown]
  - Diarrhoea [Unknown]
  - Nausea [Recovering/Resolving]
  - Dizziness [Recovering/Resolving]
  - Intentional product use issue [Unknown]
  - Off label use [Unknown]
  - Generalised anxiety disorder [Unknown]
  - Affective disorder [Unknown]

NARRATIVE: CASE EVENT DATE: 20200421
